FAERS Safety Report 10227863 (Version 1)
Quarter: 2014Q2

REPORT INFORMATION
  Report Type: Report from Study
  Country: JP (occurrence: JP)
  Receive Date: 20140610
  Receipt Date: 20140610
  Transmission Date: 20141212
  Serious: Yes (Death)
  Sender: FDA-Public Use
  Company Number: JP-ROCHE-1412627

PATIENT
  Age: 44 Year
  Sex: Female
  Weight: 43 kg

DRUGS (7)
  1. BEVACIZUMAB [Suspect]
     Indication: BREAST CANCER METASTATIC
     Route: 041
     Dates: start: 20130423, end: 20131017
  2. PACLITAXEL [Suspect]
     Indication: BREAST CANCER METASTATIC
     Route: 041
     Dates: start: 20130423, end: 20131017
  3. OXYCONTIN [Concomitant]
     Indication: PAIN
     Route: 048
     Dates: start: 20120605, end: 20131017
  4. EDIROL [Concomitant]
     Indication: OSTEOPOROSIS
     Route: 048
     Dates: start: 20120914, end: 20131017
  5. ASPARA-CA [Concomitant]
     Indication: HYPOCALCAEMIA
     Route: 048
     Dates: start: 20121004, end: 20131017
  6. RANMARK [Concomitant]
     Indication: METASTASES TO BONE
     Route: 058
     Dates: start: 20120619, end: 20131017
  7. MEDROXYPROGESTERONE ACETATE [Concomitant]

REACTIONS (2)
  - Hepatic failure [Fatal]
  - Hepatic cirrhosis [Fatal]
